FAERS Safety Report 21124586 (Version 2)
Quarter: 2022Q3

REPORT INFORMATION
  Report Type: Spontaneous
  Country: US (occurrence: US)
  Receive Date: 20220725
  Receipt Date: 20220830
  Transmission Date: 20221027
  Serious: Yes (Other)
  Sender: FDA-Public Use
  Company Number: US-BRISTOL-MYERS SQUIBB COMPANY-2022-071177

PATIENT
  Age: 85 Year
  Sex: Male

DRUGS (2)
  1. REVLIMID [Suspect]
     Active Substance: LENALIDOMIDE
     Indication: Plasma cell myeloma
     Dosage: FREQ: TAKE 1 CAPSULE BY MOUTH EVERY DAY ON DAYS 1-14 OF EACH 28 DAY CYCLE (2 WEEKS ON, 2 WEEKS OFF)
     Route: 048
  2. REVLIMID [Suspect]
     Active Substance: LENALIDOMIDE
     Dosage: 21 DAYS ON 14 DAYS OFF
     Route: 065

REACTIONS (9)
  - Vomiting [Unknown]
  - Pharyngeal swelling [Unknown]
  - Dysphagia [Unknown]
  - Asthenia [Unknown]
  - Insomnia [Unknown]
  - Back pain [Unknown]
  - Constipation [Unknown]
  - Renal impairment [Unknown]
  - Off label use [Unknown]
